FAERS Safety Report 16162445 (Version 1)
Quarter: 2019Q2

REPORT INFORMATION
  Report Type: Spontaneous
  Country: US (occurrence: US)
  Receive Date: 20190404
  Receipt Date: 20190404
  Transmission Date: 20190711
  Serious: Yes (Hospitalization, Disabling, Other)
  Sender: FDA-Public Use
  Company Number: None

PATIENT
  Age: 57 Year
  Sex: Female
  Weight: 73.35 kg

DRUGS (10)
  1. MELATONIN [Concomitant]
     Active Substance: MELATONIN
  2. KEPPRA [Concomitant]
     Active Substance: LEVETIRACETAM
  3. VIT D [Concomitant]
     Active Substance: VITAMIN D NOS
  4. LUPRON DEPOT [Suspect]
     Active Substance: LEUPROLIDE ACETATE
     Indication: UTERINE LEIOMYOMA
     Dosage: ?          QUANTITY:3 INJECTION(S);OTHER FREQUENCY:EVERY 3 MONTHS;?
     Route: 030
     Dates: start: 20120615, end: 20121215
  5. VITAMIN B6 [Concomitant]
     Active Substance: PYRIDOXINE HYDROCHLORIDE
  6. VITAMIN B12 [Concomitant]
     Active Substance: CYANOCOBALAMIN
  7. MAGNESIUM [Concomitant]
     Active Substance: MAGNESIUM
  8. ALBUTEROL. [Concomitant]
     Active Substance: ALBUTEROL
  9. TOPIRAMATE. [Concomitant]
     Active Substance: TOPIRAMATE
  10. SINGULAIR [Concomitant]
     Active Substance: MONTELUKAST SODIUM

REACTIONS (8)
  - Loss of personal independence in daily activities [None]
  - Generalised tonic-clonic seizure [None]
  - Musculoskeletal stiffness [None]
  - Mobility decreased [None]
  - Neurological symptom [None]
  - Pain in extremity [None]
  - Pain [None]
  - Periarthritis [None]

NARRATIVE: CASE EVENT DATE: 20120615
